FAERS Safety Report 14919069 (Version 1)
Quarter: 2018Q2

REPORT INFORMATION
  Report Type: Spontaneous
  Country: FR (occurrence: FR)
  Receive Date: 20180521
  Receipt Date: 20180521
  Transmission Date: 20180711
  Serious: Yes (Other)
  Sender: FDA-Public Use
  Company Number: FR-MERCK KGAA-2048141

PATIENT
  Age: 65 Year
  Sex: Male

DRUGS (1)
  1. NOVOTHYROX [Suspect]
     Active Substance: LEVOTHYROXINE SODIUM
     Indication: PRODUCT USED FOR UNKNOWN INDICATION

REACTIONS (12)
  - Irritability [None]
  - Malaise [None]
  - Gamma-glutamyltransferase increased [None]
  - Vertigo [None]
  - Libido decreased [None]
  - Personal relationship issue [None]
  - Weight increased [None]
  - Muscle spasms [None]
  - Headache [None]
  - Prostatic specific antigen increased [None]
  - Fatigue [None]
  - Nervousness [None]

NARRATIVE: CASE EVENT DATE: 20171003
